FAERS Safety Report 4355166-9 (Version None)
Quarter: 2004Q2

REPORT INFORMATION
  Report Type: 
  Country: None (occurrence: None)
  Receive Date: 20040504
  Receipt Date: 20040419
  Transmission Date: 20050107
  Serious: Yes (Hospitalization)
  Sender: FDA-Public Use
  Company Number: TPA2004A00524

PATIENT
  Age: 61 Year
  Sex: Female

DRUGS (4)
  1. ACTOS [Suspect]
     Indication: DIABETES MELLITUS NON-INSULIN-DEPENDENT
     Dosage: PER ORAL
     Route: 048
  2. GLICLAZIDE    (GLICLAZIDE) [Concomitant]
  3. THYROXINE (LEVOTHYROXINE SODIUM) [Concomitant]
  4. ATORVASTATIN     (ATORVASTATIN) [Concomitant]

REACTIONS (1)
  - ACUTE PULMONARY OEDEMA [None]
